FAERS Safety Report 5085755-8 (Version None)
Quarter: 2006Q3

REPORT INFORMATION
  Report Type: 
  Country: None (occurrence: None)
  Receive Date: 20060822
  Receipt Date: 20060719
  Transmission Date: 20061208
  Serious: Yes (Hospitalization)
  Sender: FDA-Public Use
  Company Number: FR-BRISTOL-MYERS SQUIBB COMPANY-13450093

PATIENT
  Age: 53 Year
  Sex: Male

DRUGS (8)
  1. TAXOL [Suspect]
     Indication: ADENOCARCINOMA
     Route: 042
  2. CARBOPLATIN [Suspect]
     Indication: ADENOCARCINOMA
  3. METHYLPREDNISOLONE [Concomitant]
     Route: 042
  4. DEXCHLORPHENIRAMINE [Concomitant]
     Route: 042
  5. RANITIDINE [Concomitant]
     Route: 042
  6. GRANISETRON  HCL [Concomitant]
     Route: 042
  7. MORPHINE [Concomitant]
     Dates: start: 20031101
  8. MORPHINE [Concomitant]

REACTIONS (1)
  - ENCEPHALOPATHY [None]
